FAERS Safety Report 9470869 (Version 2)
Quarter: 2013Q3

REPORT INFORMATION
  Report Type: Report from Study
  Country: IN (occurrence: IN)
  Receive Date: 20130822
  Receipt Date: 20130822
  Transmission Date: 20140515
  Serious: Yes (Hospitalization)
  Sender: FDA-Public Use
  Company Number: PHHO2008IN09261

PATIENT
  Age: 48 Year
  Sex: Male
  Weight: 62.2 kg

DRUGS (18)
  1. ALISKIREN [Suspect]
     Indication: ESSENTIAL HYPERTENSION
     Route: 048
     Dates: start: 20080528, end: 20080624
  2. ALISKIREN [Suspect]
     Route: 048
     Dates: start: 20080625, end: 20080818
  3. ALISKIREN [Suspect]
     Route: 048
     Dates: start: 20080827, end: 20081125
  4. ALISKIREN [Suspect]
     Route: 048
     Dates: start: 20081126, end: 20081129
  5. TELMISARTAN [Suspect]
  6. AMLODIPINE [Concomitant]
  7. TORSEMIDE [Concomitant]
  8. LASIX [Concomitant]
     Indication: HYPERTENSION
  9. NIFEDIPINE [Concomitant]
     Dosage: UNK
  10. FEFOL [Concomitant]
     Dosage: UNK
  11. ASOMEX [Concomitant]
  12. PRAZOSIN [Concomitant]
  13. DULOXETINE HYDROCHLORIDE [Concomitant]
  14. AMTAS-AT [Concomitant]
  15. X-TAR [Concomitant]
  16. METOLAZONE [Concomitant]
  17. CALCIUM CARBONATE [Concomitant]
  18. VITAMIN D3 [Concomitant]

REACTIONS (19)
  - Diabetes mellitus [Recovering/Resolving]
  - Diabetic retinopathy [Recovering/Resolving]
  - Fluid overload [Recovering/Resolving]
  - Polyneuropathy [Recovering/Resolving]
  - Dyslipidaemia [Recovering/Resolving]
  - Hypertension [Recovering/Resolving]
  - Hyperkalaemia [Recovering/Resolving]
  - Diabetic nephropathy [Recovering/Resolving]
  - Renal failure chronic [Recovering/Resolving]
  - Concomitant disease progression [Recovering/Resolving]
  - Generalised oedema [Not Recovered/Not Resolved]
  - Periorbital oedema [Not Recovered/Not Resolved]
  - Oedema peripheral [Not Recovered/Not Resolved]
  - Lip oedema [Not Recovered/Not Resolved]
  - Oedema [Not Recovered/Not Resolved]
  - Dyspnoea exertional [Not Recovered/Not Resolved]
  - Anaemia [Not Recovered/Not Resolved]
  - Crepitations [Not Recovered/Not Resolved]
  - Renal impairment [Not Recovered/Not Resolved]
